FAERS Safety Report 4715640-X (Version None)
Quarter: 2005Q3

REPORT INFORMATION
  Report Type: 
  Country: None (occurrence: None)
  Receive Date: 20050715
  Receipt Date: 20050715
  Transmission Date: 20060218
  Serious: Yes (Other)
  Sender: FDA-Public Use
  Company Number: None

PATIENT
  Sex: Female
  Weight: 61.2356 kg

DRUGS (2)
  1. FLUOXETINE [Suspect]
     Indication: DEPRESSION
     Dosage: 20 MG QD
  2. FLUOXETINE [Suspect]
     Indication: HORMONE LEVEL ABNORMAL
     Dosage: 20 MG QD

REACTIONS (1)
  - BLEEDING TIME PROLONGED [None]
